FAERS Safety Report 4992723-0 (Version None)
Quarter: 2006Q1

REPORT INFORMATION
  Report Type: 
  Country: None (occurrence: None)
  Receive Date: 20060313
  Receipt Date: 20051104
  Transmission Date: 20060701
  Serious: No
  Sender: FDA-Public Use
  Company Number: 2005-BP-07087BP

PATIENT
  Age: 72 Year
  Sex: Male

DRUGS (11)
  1. SPIRIVA [Suspect]
     Indication: CHRONIC OBSTRUCTIVE PULMONARY DISEASE
     Dosage: 18 MCG (18 MCG, 1 IN 1 D), IH
     Route: 055
  2. SPIRIVA [Suspect]
     Indication: NOCTURIA
     Dosage: 18 MCG (18 MCG, 1 IN 1 D), IH
     Route: 055
  3. SPIRIVA [Suspect]
     Indication: POLLAKIURIA
     Dosage: 18 MCG (18 MCG, 1 IN 1 D), IH
     Route: 055
  4. SPIRIVA [Suspect]
     Indication: URINARY RETENTION
     Dosage: 18 MCG (18 MCG, 1 IN 1 D), IH
     Route: 055
  5. PEPCID [Concomitant]
  6. ADVAIR (SERETIDE) [Concomitant]
  7. ASPIRIN [Concomitant]
  8. GLUCOSAMINE (GLUCOSAMINE) [Concomitant]
  9. MULTIPLE VITAMINS (MULTIPLE VITAMINS) [Concomitant]
  10. VITAMIN E [Concomitant]
  11. VITAMIN B (VITAMIN B) [Concomitant]

REACTIONS (2)
  - NOCTURIA [None]
  - URINARY RETENTION [None]
